FAERS Safety Report 22989870 (Version 11)
Quarter: 2025Q1

REPORT INFORMATION
  Report Type: Report from Study
  Country: US (occurrence: US)
  Receive Date: 20230927
  Receipt Date: 20250321
  Transmission Date: 20250408
  Serious: Yes (Hospitalization, Other)
  Sender: JAZZ
  Company Number: US-JAZZ PHARMACEUTICALS-2023-US-014759

PATIENT
  Age: 63 Year
  Sex: Male

DRUGS (50)
  1. XYREM [Suspect]
     Active Substance: SODIUM OXYBATE
     Indication: Narcolepsy
     Dates: start: 202304
  2. XYREM [Suspect]
     Active Substance: SODIUM OXYBATE
     Dosage: 3.5 GRAM, BID
  3. XYREM [Suspect]
     Active Substance: SODIUM OXYBATE
     Dosage: 4.5 GRAM, BID
  4. XYREM [Suspect]
     Active Substance: SODIUM OXYBATE
  5. XYREM [Suspect]
     Active Substance: SODIUM OXYBATE
  6. XYREM [Suspect]
     Active Substance: SODIUM OXYBATE
  7. XYREM [Suspect]
     Active Substance: SODIUM OXYBATE
     Dosage: 4.5 GRAM, BID
     Route: 048
     Dates: start: 20240808
  8. XYREM [Suspect]
     Active Substance: SODIUM OXYBATE
  9. XYREM [Suspect]
     Active Substance: SODIUM OXYBATE
  10. XYREM [Suspect]
     Active Substance: SODIUM OXYBATE
  11. XYREM [Suspect]
     Active Substance: SODIUM OXYBATE
  12. PRILOSEC [Concomitant]
     Active Substance: OMEPRAZOLE MAGNESIUM
     Indication: Product used for unknown indication
  13. PRILOSEC [Concomitant]
     Active Substance: OMEPRAZOLE MAGNESIUM
  14. PRILOSEC [Concomitant]
     Active Substance: OMEPRAZOLE MAGNESIUM
  15. PRILOSEC [Concomitant]
     Active Substance: OMEPRAZOLE MAGNESIUM
  16. ELIQUIS [Concomitant]
     Active Substance: APIXABAN
     Indication: Product used for unknown indication
  17. ELIQUIS [Concomitant]
     Active Substance: APIXABAN
  18. ELIQUIS [Concomitant]
     Active Substance: APIXABAN
  19. ELIQUIS [Concomitant]
     Active Substance: APIXABAN
  20. VESICARE [Concomitant]
     Active Substance: SOLIFENACIN SUCCINATE
     Indication: Product used for unknown indication
  21. VESICARE [Concomitant]
     Active Substance: SOLIFENACIN SUCCINATE
  22. VESICARE [Concomitant]
     Active Substance: SOLIFENACIN SUCCINATE
  23. VESICARE [Concomitant]
     Active Substance: SOLIFENACIN SUCCINATE
  24. EFFEXOR [Concomitant]
     Active Substance: VENLAFAXINE HYDROCHLORIDE
     Indication: Product used for unknown indication
  25. EFFEXOR [Concomitant]
     Active Substance: VENLAFAXINE HYDROCHLORIDE
  26. EFFEXOR [Concomitant]
     Active Substance: VENLAFAXINE HYDROCHLORIDE
  27. EFFEXOR [Concomitant]
     Active Substance: VENLAFAXINE HYDROCHLORIDE
  28. FERROUS SULFATE [Concomitant]
     Active Substance: FERROUS SULFATE
     Indication: Product used for unknown indication
     Dates: start: 20230514
  29. FERROUS SULFATE [Concomitant]
     Active Substance: FERROUS SULFATE
  30. FERROUS SULFATE [Concomitant]
     Active Substance: FERROUS SULFATE
  31. FERROUS SULFATE [Concomitant]
     Active Substance: FERROUS SULFATE
  32. FERROUS SULFATE [Concomitant]
     Active Substance: FERROUS SULFATE
  33. VITAMIN D3 [Concomitant]
     Active Substance: CHOLECALCIFEROL
     Indication: Product used for unknown indication
     Dosage: 250 MICROGRAM, QD
     Dates: start: 20210814
  34. VITAMIN D3 [Concomitant]
     Active Substance: CHOLECALCIFEROL
     Dosage: 250 MICROGRAM, QD
     Dates: start: 20210814
  35. VITAMIN D3 [Concomitant]
     Active Substance: CHOLECALCIFEROL
     Dosage: 250 MICROGRAM, QD
     Dates: start: 20210814
  36. VITAMIN D3 [Concomitant]
     Active Substance: CHOLECALCIFEROL
     Dosage: 250 MICROGRAM, QD
     Dates: start: 20210814
  37. ACETAMINOPHEN\HYDROCODONE [Concomitant]
     Active Substance: ACETAMINOPHEN\HYDROCODONE
     Indication: Pain
  38. ACETAMINOPHEN\HYDROCODONE [Concomitant]
     Active Substance: ACETAMINOPHEN\HYDROCODONE
  39. ACETAMINOPHEN\HYDROCODONE [Concomitant]
     Active Substance: ACETAMINOPHEN\HYDROCODONE
  40. ACETAMINOPHEN\HYDROCODONE [Concomitant]
     Active Substance: ACETAMINOPHEN\HYDROCODONE
  41. BUSPIRONE [Concomitant]
     Active Substance: BUSPIRONE HYDROCHLORIDE
     Indication: Product used for unknown indication
  42. VENLAFAXINE [Concomitant]
     Active Substance: VENLAFAXINE HYDROCHLORIDE
     Indication: Product used for unknown indication
  43. OMEPRAZOLE [Concomitant]
     Active Substance: OMEPRAZOLE
     Indication: Product used for unknown indication
  44. ATORVASTATIN [Concomitant]
     Active Substance: ATORVASTATIN
     Indication: Product used for unknown indication
  45. MOVANTIK [Concomitant]
     Active Substance: NALOXEGOL OXALATE
     Indication: Product used for unknown indication
  46. LUBIPROSTONE [Concomitant]
     Active Substance: LUBIPROSTONE
     Indication: Product used for unknown indication
  47. OXYCODONE [Concomitant]
     Active Substance: OXYCODONE
     Indication: Product used for unknown indication
  48. OXYCODONE [Concomitant]
     Active Substance: OXYCODONE
  49. ZYLOPRIM [Concomitant]
     Active Substance: ALLOPURINOL
     Indication: Product used for unknown indication
  50. ZYLOPRIM [Concomitant]
     Active Substance: ALLOPURINOL

REACTIONS (16)
  - Intensive care [Unknown]
  - Cataract [Unknown]
  - Memory impairment [Unknown]
  - Condition aggravated [Unknown]
  - Visual impairment [Unknown]
  - Chondrodermatitis nodularis chronica helicis [Unknown]
  - Wound [Unknown]
  - Abdominal mass [Unknown]
  - Constipation [Unknown]
  - Nocturia [Recovered/Resolved]
  - Localised infection [Not Recovered/Not Resolved]
  - Somnolence [Unknown]
  - Therapeutic product effect decreased [Unknown]
  - Extra dose administered [Unknown]
  - Product administration interrupted [Unknown]
  - Product dose omission issue [Unknown]

NARRATIVE: CASE EVENT DATE: 20230917
